FAERS Safety Report 5940855-2 (Version None)
Quarter: 2008Q4

REPORT INFORMATION
  Report Type: 
  Country: None (occurrence: None)
  Receive Date: 20081104
  Receipt Date: 20081022
  Transmission Date: 20090506
  Serious: Yes (Other)
  Sender: FDA-Public Use
  Company Number: GR-ELI_LILLY_AND_COMPANY-GR200810005238

PATIENT
  Age: 55 Year
  Sex: Female

DRUGS (2)
  1. EVISTA [Suspect]
     Indication: OSTEOPOROSIS
     Dosage: 60 MG, DAILY (1/D)
     Route: 048
     Dates: start: 20060320, end: 20060330
  2. T4 [Concomitant]
     Indication: HYPOTHYROIDISM
     Dosage: UNK UNK, DAILY (1/D)
     Route: 048

REACTIONS (1)
  - HYPERTENSION [None]
